FAERS Safety Report 8357421-4 (Version None)
Quarter: 2012Q2

REPORT INFORMATION
  Report Type: 
  Country: None (occurrence: None)
  Receive Date: 20120511
  Receipt Date: 20120504
  Transmission Date: 20120825
  Serious: Yes (Death, Hospitalization)
  Sender: FDA-Public Use
  Company Number: 2012SP018416

PATIENT
  Age: 56 Year
  Sex: Female

DRUGS (14)
  1. ATENOLOL [Concomitant]
  2. OMEPRAZOLE [Concomitant]
  3. SULFASALAZINE [Concomitant]
  4. PRAVASTATIN [Concomitant]
  5. PREDNISONE TAB [Concomitant]
  6. HYDROCODONE BITARTRATE + ACETAMINOPHEN [Concomitant]
  7. VICTRELIS [Suspect]
     Indication: HEPATITIS C
     Dosage: 800 MG;TID;PO
     Route: 048
  8. PEGASYS [Suspect]
     Indication: PRODUCT USED FOR UNKNOWN INDICATION
     Dosage: 180 MCG;QW;SC
     Route: 058
     Dates: start: 20120202
  9. HYDROXYCHLOROQUINE SULFATE [Concomitant]
  10. AMITRIPTYLINE HCL [Concomitant]
  11. TRAMADOL HYDROCHLORIDE [Concomitant]
  12. KETOPROFEN [Concomitant]
  13. FOLIC ACID [Concomitant]
  14. RIBAVIRIN [Suspect]
     Indication: PRODUCT USED FOR UNKNOWN INDICATION
     Dosage: 1000 MG;QD
     Dates: start: 20120202

REACTIONS (10)
  - PUPIL FIXED [None]
  - DYSPEPSIA [None]
  - RENAL FAILURE ACUTE [None]
  - CARDIAC ARREST [None]
  - HYPERPHOSPHATAEMIA [None]
  - METABOLIC ACIDOSIS [None]
  - HYPOXIC-ISCHAEMIC ENCEPHALOPATHY [None]
  - UNRESPONSIVE TO STIMULI [None]
  - NAUSEA [None]
  - BRADYCARDIA [None]
